FAERS Safety Report 18808950 (Version 1)
Quarter: 2021Q1

REPORT INFORMATION
  Report Type: Spontaneous
  Country: CA (occurrence: CA)
  Receive Date: 20210129
  Receipt Date: 20210129
  Transmission Date: 20210419
  Serious: Yes (Death, Other)
  Sender: FDA-Public Use
  Company Number: CA-ASTRAZENECA-2021A018538

PATIENT

DRUGS (9)
  1. PROBUCOL [Suspect]
     Active Substance: PROBUCOL
     Indication: TYPE IIA HYPERLIPIDAEMIA
     Route: 065
  2. EZETROL [Suspect]
     Active Substance: EZETIMIBE
     Indication: TYPE IIA HYPERLIPIDAEMIA
     Route: 065
  3. ROSUVASTATIN. [Suspect]
     Active Substance: ROSUVASTATIN
     Indication: TYPE IIA HYPERLIPIDAEMIA
     Route: 048
  4. JUXTAPID [Suspect]
     Active Substance: LOMITAPIDE MESYLATE
     Indication: TYPE IIA HYPERLIPIDAEMIA
     Route: 065
  5. LOVASTATIN. [Suspect]
     Active Substance: LOVASTATIN
     Indication: TYPE IIA HYPERLIPIDAEMIA
     Route: 065
  6. ATORVASTATIN CALCIUM. [Suspect]
     Active Substance: ATORVASTATIN CALCIUM
     Indication: TYPE IIA HYPERLIPIDAEMIA
     Route: 065
  7. IMPLITAPIDE. [Suspect]
     Active Substance: IMPLITAPIDE
     Indication: TYPE IIA HYPERLIPIDAEMIA
     Route: 065
  8. REPATHA [Suspect]
     Active Substance: EVOLOCUMAB
     Indication: TYPE IIA HYPERLIPIDAEMIA
     Route: 058
  9. ZOCOR [Suspect]
     Active Substance: SIMVASTATIN
     Indication: TYPE IIA HYPERLIPIDAEMIA
     Route: 065

REACTIONS (2)
  - Disease progression [Fatal]
  - Type IIa hyperlipidaemia [Fatal]
